FAERS Safety Report 9593519 (Version 1)
Quarter: 2013Q4

REPORT INFORMATION
  Report Type: Report from Study
  Country: US (occurrence: US)
  Receive Date: 20131004
  Receipt Date: 20131004
  Transmission Date: 20140711
  Serious: No
  Sender: FDA-Public Use
  Company Number: US-ALEXION-A201301422

PATIENT
  Age: 51 Year
  Sex: Male

DRUGS (1)
  1. SOLIRIS 300MG [Suspect]
     Indication: HAEMOLYTIC URAEMIC SYNDROME
     Dosage: UNK
     Route: 042
     Dates: start: 20130606

REACTIONS (3)
  - Limb discomfort [Unknown]
  - Musculoskeletal discomfort [Unknown]
  - Oropharyngeal pain [Recovered/Resolved]
